FAERS Safety Report 7162248-5 (Version None)
Quarter: 2010Q4

REPORT INFORMATION
  Report Type: 
  Country: None (occurrence: None)
  Receive Date: 20101215
  Receipt Date: 20090921
  Transmission Date: 20110411
  Serious: Yes (Other)
  Sender: FDA-Public Use
  Company Number: RU-PFIZER INC-2009274391

PATIENT
  Age: 22 Year

DRUGS (4)
  1. LYRICA [Suspect]
     Indication: EPILEPSY
     Dosage: 150 MG, 2X/DAY
     Dates: start: 20090901, end: 20090901
  2. LYRICA [Suspect]
     Dosage: 75 MG, 2X/DAY
     Dates: start: 20090901, end: 20090901
  3. DEPAKENE [Concomitant]
     Indication: EPILEPSY
  4. FINLEPSIN [Concomitant]
     Indication: EPILEPSY

REACTIONS (1)
  - EPILEPSY [None]
